FAERS Safety Report 11552524 (Version 1)
Quarter: 2015Q3

REPORT INFORMATION
  Report Type: Spontaneous
  Country: US (occurrence: US)
  Receive Date: 20150925
  Receipt Date: 20150925
  Transmission Date: 20151125
  Serious: No
  Sender: FDA-Public Use
  Company Number: US-PFIZER INC-2015293366

PATIENT
  Age: 58 Year
  Sex: Female
  Weight: 60 kg

DRUGS (3)
  1. LIPITOR [Suspect]
     Active Substance: ATORVASTATIN CALCIUM
     Indication: BLOOD CHOLESTEROL INCREASED
     Dosage: 20 MG, 1X/DAY
     Route: 048
     Dates: start: 20150731, end: 201508
  2. CALCIUM [Concomitant]
     Active Substance: CALCIUM
     Dosage: 5 DF, DAILY
     Route: 048
  3. VITAMIN B12 [Concomitant]
     Active Substance: CYANOCOBALAMIN
     Dosage: 1 DF, DAILY
     Route: 048

REACTIONS (4)
  - Musculoskeletal stiffness [Recovering/Resolving]
  - Arthralgia [Recovered/Resolved]
  - Paraesthesia [Recovered/Resolved]
  - Limb discomfort [Unknown]

NARRATIVE: CASE EVENT DATE: 201508
